FAERS Safety Report 8192937-5 (Version None)
Quarter: 2012Q1

REPORT INFORMATION
  Report Type: 
  Country: None (occurrence: None)
  Receive Date: 20120308
  Receipt Date: 20120302
  Transmission Date: 20120608
  Serious: Yes (Death)
  Sender: FDA-Public Use
  Company Number: AR-BRISTOL-MYERS SQUIBB COMPANY-16400947

PATIENT
  Age: 48 Year
  Sex: Female
  Weight: 53 kg

DRUGS (5)
  1. CISPLATIN [Suspect]
     Indication: NON-SMALL CELL LUNG CANCER
     Dosage: LAST DOSE:6FEB2012.
     Route: 042
     Dates: start: 20120116
  2. FOLIC ACID [Concomitant]
     Dates: start: 20120106, end: 20120107
  3. VITAMIN B-12 [Concomitant]
     Dates: start: 20120106
  4. PEMETREXED DISODIUM [Suspect]
     Indication: NON-SMALL CELL LUNG CANCER
     Dosage: LAST DOSE:06FEB2012.
     Route: 042
     Dates: start: 20120116
  5. DEXAMETHASONE [Concomitant]
     Dates: start: 20120206

REACTIONS (1)
  - PULMONARY HAEMORRHAGE [None]
